FAERS Safety Report 7653138-X (Version None)
Quarter: 2011Q3

REPORT INFORMATION
  Report Type: 
  Country: None (occurrence: None)
  Receive Date: 20110802
  Receipt Date: 20110802
  Transmission Date: 20111222
  Serious: Yes (Other)
  Sender: FDA-Public Use
  Company Number: None

PATIENT
  Age: 83 Year
  Sex: Female
  Weight: 54.4316 kg

DRUGS (1)
  1. NITROFURANTOIN [Suspect]
     Indication: URINARY TRACT INFECTION
     Dosage: 1  2 X A DAY
     Dates: start: 20110719

REACTIONS (3)
  - FEELING OF BODY TEMPERATURE CHANGE [None]
  - MIDDLE INSOMNIA [None]
  - TREMOR [None]
